FAERS Safety Report 9239040 (Version 4)
Quarter: 2013Q2

REPORT INFORMATION
  Report Type: Spontaneous
  Country: US (occurrence: US)
  Receive Date: 20130418
  Receipt Date: 20130614
  Transmission Date: 20140414
  Serious: Yes (Life-Threatening, Hospitalization, Disabling)
  Sender: FDA-Public Use
  Company Number: US-B.I. PHARMACEUTICALS,INC./RIDGEFIELD-2013-BI-10572BP

PATIENT
  Age: 84 Year
  Sex: Female

DRUGS (13)
  1. PRADAXA [Suspect]
     Indication: ATRIAL FIBRILLATION
     Dosage: 300 MG
     Route: 048
     Dates: start: 20111001, end: 20111212
  2. SYNTHROID [Concomitant]
     Dosage: 75 MCG
     Route: 048
  3. BETA BLOCKER [Concomitant]
  4. CELLCEPT [Concomitant]
     Indication: VASCULITIS
  5. AMIODARONE [Concomitant]
  6. DULOXETINE [Concomitant]
  7. FAMOTIDINE [Concomitant]
  8. HYDROCORTISONE [Concomitant]
  9. LEVETIRACETAM [Concomitant]
  10. METOPROLOL [Concomitant]
  11. MULTIVITAMIN [Concomitant]
  12. MYCOPHENOLATE [Concomitant]
  13. SENNA [Concomitant]

REACTIONS (1)
  - Cerebral haemorrhage [Recovered/Resolved]
